FAERS Safety Report 13393775 (Version 1)
Quarter: 2017Q1

REPORT INFORMATION
  Report Type: Report from Study
  Country: None (occurrence: BR)
  Receive Date: 20170331
  Receipt Date: 20170331
  Transmission Date: 20170429
  Serious: Yes (Other)
  Sender: FDA-Public Use
  Company Number: BR-ABBVIE-17P-020-1929108-00

PATIENT
  Sex: Female
  Weight: 96.3 kg

DRUGS (7)
  1. SYNTHROID [Suspect]
     Active Substance: LEVOTHYROXINE SODIUM
     Route: 065
  2. TIMOLOL MALEATE. [Concomitant]
     Active Substance: TIMOLOL MALEATE
     Indication: GLAUCOMA
     Dosage: FORM OF ADMINISTRATION: EYE DROPS, MORNING/NIGHT
     Dates: start: 2015
  3. TRAVATAN [Concomitant]
     Active Substance: TRAVOPROST
     Indication: GLAUCOMA
     Dosage: FORM OF ADMINISTRATION: EYE DROPS, NIGHT
     Dates: start: 2015
  4. SYNTHROID [Suspect]
     Active Substance: LEVOTHYROXINE SODIUM
     Indication: HYPOTHYROIDISM
     Dosage: 40 MINUTES BEFORE BREAKFAST, FASTING
     Route: 065
  5. DIOVAN [Concomitant]
     Active Substance: VALSARTAN
     Indication: BLOOD PRESSURE MEASUREMENT
     Dosage: FORM STRENGTH: ^160/5 MG^, AT BREAKFAST
  6. ORLISTAT [Concomitant]
     Active Substance: ORLISTAT
     Indication: WEIGHT CONTROL
     Dosage: WHEN ABOUT TO EAT FAT FOOD
     Dates: start: 201612
  7. SYNTHROID [Suspect]
     Active Substance: LEVOTHYROXINE SODIUM
     Route: 048

REACTIONS (14)
  - Thyroid mass [Recovered/Resolved]
  - Pain in extremity [Unknown]
  - Tendonitis [Not Recovered/Not Resolved]
  - Osteoarthritis [Not Recovered/Not Resolved]
  - Limb discomfort [Not Recovered/Not Resolved]
  - Meniscal degeneration [Not Recovered/Not Resolved]
  - Synovial cyst [Unknown]
  - Eye inflammation [Unknown]
  - Eye swelling [Unknown]
  - Pain [Not Recovered/Not Resolved]
  - Spinal disorder [Not Recovered/Not Resolved]
  - Arthralgia [Not Recovered/Not Resolved]
  - Inappropriate schedule of drug administration [Unknown]
  - Intervertebral disc protrusion [Not Recovered/Not Resolved]

NARRATIVE: CASE EVENT DATE: 2016
